FAERS Safety Report 22216053 (Version 2)
Quarter: 2023Q2

REPORT INFORMATION
  Report Type: Spontaneous
  Country: US (occurrence: US)
  Receive Date: 20230417
  Receipt Date: 20230418
  Transmission Date: 20230722
  Serious: Yes (Hospitalization, Other)
  Sender: FDA-Public Use
  Company Number: US-ABBVIE-4730578

PATIENT
  Sex: Male

DRUGS (2)
  1. LUPRON [Suspect]
     Active Substance: LEUPROLIDE ACETATE
     Indication: Product used for unknown indication
     Route: 065
     Dates: start: 2021
  2. LUPRON [Suspect]
     Active Substance: LEUPROLIDE ACETATE
     Dosage: FORM STRENGTH: 30 MILLIGRAM
     Route: 065
     Dates: start: 20220819

REACTIONS (11)
  - Urethral injury [Unknown]
  - Feeling abnormal [Unknown]
  - Pain in extremity [Unknown]
  - Loss of consciousness [Unknown]
  - Toe operation [Unknown]
  - Incontinence [Unknown]
  - Breast pain [Unknown]
  - Peripheral swelling [Unknown]
  - Joint swelling [Unknown]
  - Dizziness [Unknown]
  - Prostate cancer [Unknown]
